FAERS Safety Report 6358955-4 (Version None)
Quarter: 2009Q3

REPORT INFORMATION
  Report Type: 
  Country: None (occurrence: None)
  Receive Date: 20090914
  Receipt Date: 20090902
  Transmission Date: 20100115
  Serious: Yes (Hospitalization, Other)
  Sender: FDA-Public Use
  Company Number: 230093M09GBR

PATIENT
  Age: 43 Year
  Sex: Female

DRUGS (2)
  1. REBIF [Suspect]
     Dosage: 44 MCG, 3 IN 1 WEEKS
     Dates: start: 20030801, end: 20090601
  2. DIAZEPAM [Concomitant]

REACTIONS (7)
  - ABDOMINAL MASS [None]
  - ADRENAL MASS [None]
  - BASAL GANGLIA INFARCTION [None]
  - GRAND MAL CONVULSION [None]
  - PLATELET COUNT DECREASED [None]
  - STATUS EPILEPTICUS [None]
  - VAGINAL HAEMORRHAGE [None]
